FAERS Safety Report 11500266 (Version 1)
Quarter: 2015Q3

REPORT INFORMATION
  Report Type: Spontaneous
  Country: US (occurrence: None)
  Receive Date: 20150910
  Receipt Date: 20150910
  Transmission Date: 20151125
  Serious: Yes (Disabling)
  Sender: FDA-Public Use
  Company Number: NSR_02245_2015

PATIENT
  Sex: Male
  Weight: 141 kg

DRUGS (3)
  1. BC [Suspect]
     Active Substance: ASPIRIN\CAFFEINE
     Indication: INFLAMMATION
     Dates: start: 2006
  2. TRAMADOL. [Suspect]
     Active Substance: TRAMADOL
     Indication: SPINAL PAIN
     Route: 048
     Dates: start: 2014, end: 201401
  3. LYRICA [Suspect]
     Active Substance: PREGABALIN
     Indication: SPINAL PAIN
     Dates: start: 201311, end: 201401

REACTIONS (3)
  - Activities of daily living impaired [None]
  - Nerve injury [None]
  - Pain [None]

NARRATIVE: CASE EVENT DATE: 2014
